FAERS Safety Report 4364185-8 (Version None)
Quarter: 2004Q2

REPORT INFORMATION
  Report Type: 
  Country: None (occurrence: None)
  Receive Date: 20040519
  Receipt Date: 20040507
  Transmission Date: 20050107
  Serious: Yes (Hospitalization)
  Sender: FDA-Public Use
  Company Number: HQWYE809511MAY04

PATIENT
  Age: 34 Year
  Sex: Female

DRUGS (11)
  1. PROTONIX [Suspect]
     Indication: UPPER GASTROINTESTINAL HAEMORRHAGE
     Dosage: ONE 40 MG DOSE, INTRAVENOUS
     Route: 042
     Dates: start: 20040430, end: 20040501
  2. TEQUIN [Concomitant]
  3. LACTULOSE [Concomitant]
  4. MILK OF MAGNESIA (MAGNESIUM HYDROXIDE) [Concomitant]
  5. SENNA (SENNA) [Concomitant]
  6. BISACODYL (BISACODYL) [Concomitant]
  7. ACETYLCYSTEINE [Concomitant]
  8. ROBITUSSIN (GUAIFENESIN) [Concomitant]
  9. TYLENOL [Concomitant]
  10. BACLOFEN [Concomitant]
  11. ALBUTEROL [Concomitant]

REACTIONS (4)
  - BLISTER [None]
  - DRUG HYPERSENSITIVITY [None]
  - INJECTION SITE EXTRAVASATION [None]
  - OEDEMA PERIPHERAL [None]
